FAERS Safety Report 10530652 (Version 1)
Quarter: 2014Q4

REPORT INFORMATION
  Report Type: Spontaneous
  Country: JP (occurrence: None)
  Receive Date: 20141017
  Receipt Date: 20141017
  Transmission Date: 20150528
  Serious: Yes (Hospitalization)
  Sender: FDA-Public Use
  Company Number: FK201404049

PATIENT
  Age: 62 Year
  Sex: Male

DRUGS (5)
  1. PIPERACILLIN TAZOBACTAM (PIP/TAZO) [Concomitant]
  2. VANCOMYCIN [Suspect]
     Active Substance: VANCOMYCIN
     Indication: SEPSIS
     Route: 042
  3. VANCOMYCIN [Suspect]
     Active Substance: VANCOMYCIN
     Indication: ENDOCARDITIS
     Route: 042
  4. RIFAMPICIN [Concomitant]
     Active Substance: RIFAMPIN
  5. SULFAMETHOXAZOLE AND TRIMETHOPRIM (BACTRIM) [Concomitant]

REACTIONS (7)
  - Drug eruption [None]
  - Staphylococcal infection [None]
  - Endocarditis [None]
  - Linear IgA disease [None]
  - Sepsis [None]
  - Dermatitis bullous [None]
  - Oedema [None]
